FAERS Safety Report 16366281 (Version 6)
Quarter: 2019Q3

REPORT INFORMATION
  Report Type: Report from Study
  Country: BE (occurrence: BE)
  Receive Date: 20190529
  Receipt Date: 20190912
  Transmission Date: 20191004
  Serious: Yes (Life-Threatening, Hospitalization)
  Sender: FDA-Public Use
  Company Number: BE-CELGENEUS-BEL-20190504806

PATIENT
  Age: 74 Year
  Sex: Male

DRUGS (4)
  1. POMALIDOMIDE [Suspect]
     Active Substance: POMALIDOMIDE
     Indication: PLASMA CELL MYELOMA
     Route: 048
     Dates: start: 20170615, end: 20170705
  2. DEXAMETHASONE. [Suspect]
     Active Substance: DEXAMETHASONE
     Indication: PLASMA CELL MYELOMA
     Dosage: 40 MILLIGRAM
     Route: 048
     Dates: start: 20170619, end: 20170710
  3. POMALIDOMIDE [Suspect]
     Active Substance: POMALIDOMIDE
     Route: 048
     Dates: start: 20190123, end: 20190212
  4. DEXAMETHASONE. [Suspect]
     Active Substance: DEXAMETHASONE
     Dosage: 40 MILLIGRAM
     Route: 048
     Dates: start: 20190123, end: 20190213

REACTIONS (4)
  - Aspergillus infection [Recovered/Resolved]
  - Respiratory failure [Recovered/Resolved]
  - Influenza [Recovered/Resolved]
  - Pneumonia [Recovered/Resolved]

NARRATIVE: CASE EVENT DATE: 20181214
